FAERS Safety Report 11611299 (Version 2)
Quarter: 2016Q1

REPORT INFORMATION
  Report Type: Spontaneous
  Country: DE (occurrence: DE)
  Receive Date: 20151008
  Receipt Date: 20160107
  Transmission Date: 20160525
  Serious: Yes (Other)
  Sender: FDA-Public Use
  Company Number: DE-CELGENE-DEU-2015063574

PATIENT
  Age: 49 Year
  Sex: Female

DRUGS (2)
  1. ABRAXANE [Suspect]
     Active Substance: PACLITAXEL
     Indication: INVASIVE DUCTAL BREAST CARCINOMA
     Dosage: 125 MILLIGRAM/SQ. METER
     Route: 041
     Dates: start: 201306, end: 201402
  2. BEVACIZUMAB [Concomitant]
     Active Substance: BEVACIZUMAB
     Indication: INVASIVE DUCTAL BREAST CARCINOMA
     Route: 065
     Dates: start: 201306, end: 201402

REACTIONS (3)
  - Retinal scar [Unknown]
  - Metastases to bone [Unknown]
  - Polyneuropathy [Unknown]

NARRATIVE: CASE EVENT DATE: 201308
